FAERS Safety Report 10669827 (Version 1)
Quarter: 2014Q4

REPORT INFORMATION
  Report Type: Spontaneous
  Country: CH (occurrence: CH)
  Receive Date: 20141222
  Receipt Date: 20141222
  Transmission Date: 20150529
  Serious: Yes (Congenital Anomaly, Other)
  Sender: FDA-Public Use
  Company Number: CH-009507513-1412CHE009742

PATIENT
  Sex: Female

DRUGS (6)
  1. PLAQUENIL [Suspect]
     Active Substance: HYDROXYCHLOROQUINE SULFATE
     Dosage: 2 DF, DAILY
     Route: 064
  2. BACTRIM [Suspect]
     Active Substance: SULFAMETHOXAZOLE\TRIMETHOPRIM
     Dosage: 3 PER WEEK
     Route: 064
     Dates: end: 20131114
  3. PREDNISONE. [Suspect]
     Active Substance: PREDNISONE
     Dosage: ONCE DAILY
     Route: 064
  4. CALCIMAGON D3 [Suspect]
     Active Substance: CALCIUM\CHOLECALCIFEROL
     Dosage: UNK
     Route: 064
  5. BENLYSTA [Suspect]
     Active Substance: BELIMUMAB
     Dosage: ONCE PER MONTH
     Route: 064
     Dates: end: 20130930
  6. FOSAMAX [Suspect]
     Active Substance: ALENDRONATE SODIUM
     Dosage: UNK
     Route: 064
     Dates: end: 201310

REACTIONS (2)
  - Foetal growth restriction [Recovering/Resolving]
  - Premature baby [Recovering/Resolving]

NARRATIVE: CASE EVENT DATE: 20140506
